FAERS Safety Report 7164607-3 (Version None)
Quarter: 2010Q4

REPORT INFORMATION
  Report Type: 
  Country: None (occurrence: None)
  Receive Date: 20101215
  Receipt Date: 20101210
  Transmission Date: 20110411
  Serious: Yes (Hospitalization)
  Sender: FDA-Public Use
  Company Number: FR-PFIZER INC-2010169000

PATIENT
  Sex: Female

DRUGS (1)
  1. IBUPROFEN (ADVIL) [Suspect]
     Indication: EAR INFECTION
     Dosage: UNK
     Dates: start: 20090101, end: 20090101

REACTIONS (2)
  - RENAL FAILURE ACUTE [None]
  - RENAL TUBULAR DISORDER [None]
